FAERS Safety Report 9257932 (Version 1)
Quarter: 2013Q1

REPORT INFORMATION
  Report Type: Spontaneous
  Country: US (occurrence: None)
  Receive Date: 20121212
  Receipt Date: 20121212
  Transmission Date: 20140127
  Serious: No
  Sender: FDA-Public Use
  Company Number: 1208USA000561

PATIENT
  Age: 59 Year
  Sex: Female

DRUGS (8)
  1. VICTRELIS [Suspect]
     Indication: HEPATIC CIRRHOSIS
     Route: 048
     Dates: start: 20120101
  2. RIBASPHERE [Suspect]
  3. PEGINTRON [Suspect]
  4. PROCRIT [Concomitant]
  5. VENLAFAXINE HYDROCHLORIDE (VENLAFAXINE HYDROCHLORIDE) [Concomitant]
  6. TRAZODONE HYDROCHLORIDE (TRAZODONE HYDROCHLORIDE) [Concomitant]
  7. NEXIUM (ESOMEPRAZOLE MAGNESIUM) [Concomitant]
  8. PROVIGIL (MODAFINIL) [Concomitant]

REACTIONS (3)
  - Bone pain [None]
  - Depression [None]
  - Weight decreased [None]
